FAERS Safety Report 23659509 (Version 1)
Quarter: 2024Q1

REPORT INFORMATION
  Report Type: Other
  Country: US (occurrence: US)
  Receive Date: 20240321
  Receipt Date: 20240321
  Transmission Date: 20240410
  Serious: No
  Sender: FDA-Public Use
  Company Number: US-TEVA-VS-3161228

PATIENT
  Age: 51 Year
  Sex: Female

DRUGS (13)
  1. COPAXONE [Suspect]
     Active Substance: GLATIRAMER ACETATE
     Indication: Product used for unknown indication
     Dosage: TIME INTERVAL: 0.33333333 WEEKS
     Route: 065
     Dates: start: 20220524
  2. TYLENOL [Concomitant]
     Active Substance: ACETAMINOPHEN
     Route: 065
  3. LEXAPRO [Concomitant]
     Active Substance: ESCITALOPRAM OXALATE
     Route: 065
  4. QUETIAPINE FUMARATE [Concomitant]
     Active Substance: QUETIAPINE FUMARATE
     Route: 065
  5. LACTULOSE [Concomitant]
     Active Substance: LACTULOSE
     Dosage: 20MG/30ML, 15ML ORALLY ONCE A DAY
     Route: 048
  6. TRAMADOL [Concomitant]
     Active Substance: TRAMADOL\TRAMADOL HYDROCHLORIDE
     Dosage: TIME INTERVAL: 0.33333333 DAYS: 50MG TAKE 1 TABLET BY MOUTH 3TIMES A DAY
     Route: 048
  7. Buspar HCL [Concomitant]
     Dosage: TIME INTERVAL: 0.33333333 DAYS
     Route: 048
  8. AVONEX PEN [Concomitant]
     Active Substance: INTERFERON BETA-1A
     Dosage: 30MCG/0.5ML AUTOINJECTOR INTRAMUSCULAR
     Route: 030
  9. LEVETIRACETAM [Concomitant]
     Active Substance: LEVETIRACETAM
     Route: 048
  10. CLONAZEPAM [Concomitant]
     Active Substance: CLONAZEPAM
     Dosage: 3 TABLET BY MOUTH AT BEDTIME
     Route: 048
  11. TIZANIDINE HYDROCHLORIDE [Concomitant]
     Active Substance: TIZANIDINE HYDROCHLORIDE
     Dosage: TIME INTERVAL: 0.33333333 DAYS
     Route: 048
  12. LYRICA [Concomitant]
     Active Substance: PREGABALIN
     Dosage: 1 CAPSULE BY MOUTH EVERYDAY FOR 30 DAYS.
     Route: 048
  13. ESZOPICLONE [Concomitant]
     Active Substance: ESZOPICLONE
     Dosage: 1 TABLET BY MOUTH AT BEDTIME.
     Route: 048

REACTIONS (6)
  - Brain fog [Unknown]
  - Pain [Unknown]
  - Product dose omission issue [Unknown]
  - Fall [Unknown]
  - Fall [Unknown]
  - Monoparesis [Unknown]
